FAERS Safety Report 9956948 (Version 1)
Quarter: 2014Q1

REPORT INFORMATION
  Report Type: Report from Study
  Country: US (occurrence: US)
  Receive Date: 20140304
  Receipt Date: 20140304
  Transmission Date: 20141002
  Serious: No
  Sender: FDA-Public Use
  Company Number: US-ABBVIE-13P-163-1122047-00

PATIENT
  Sex: Female

DRUGS (7)
  1. HUMIRA [Suspect]
     Indication: RHEUMATOID ARTHRITIS
     Dates: start: 20130421
  2. METHOTREXATE [Concomitant]
     Indication: PRODUCT USED FOR UNKNOWN INDICATION
     Dosage: 5 TABS ON DAY 1
  3. METHOTREXATE [Concomitant]
     Dosage: 5 TABS THE NEXT DAY WITH WEEKLY DOSING
  4. ARMOUR THYROID [Concomitant]
     Indication: HYPOTHYROIDISM
  5. UNKNOWN IODINE SUPPLEMENT [Concomitant]
     Indication: PRODUCT USED FOR UNKNOWN INDICATION
  6. VITAMIN D [Concomitant]
     Indication: PRODUCT USED FOR UNKNOWN INDICATION
  7. ALPRAZOLAM [Concomitant]
     Indication: TINNITUS

REACTIONS (3)
  - Device malfunction [Recovered/Resolved]
  - Incorrect dose administered [Unknown]
  - Injection site pain [Unknown]
